FAERS Safety Report 25715770 (Version 1)
Quarter: 2025Q3

REPORT INFORMATION
  Report Type: Spontaneous
  Country: US (occurrence: None)
  Receive Date: 20250821
  Receipt Date: 20250821
  Transmission Date: 20251020
  Serious: Yes (Life-Threatening, Hospitalization)
  Sender: FDA-CTU
  Company Number: None

PATIENT
  Age: 50 Year
  Sex: Male
  Weight: 78 kg

DRUGS (2)
  1. EDETATE CALCIUM DISODIUM [Suspect]
     Active Substance: EDETATE CALCIUM DISODIUM
     Indication: Metal poisoning
     Route: 040
     Dates: start: 20250606, end: 20250716
  2. MYERS B (COMPOUND) [Suspect]
     Active Substance: DEXPANTHENOL\THIAMINE HYDROCHLORIDE
     Indication: Metal poisoning
     Route: 040
     Dates: start: 20250606, end: 20250716

REACTIONS (3)
  - Infusion related reaction [None]
  - Angioedema [None]
  - Therapy cessation [None]

NARRATIVE: CASE EVENT DATE: 20250707
